FAERS Safety Report 10081524 (Version 2)
Quarter: 2014Q2

REPORT INFORMATION
  Report Type: Spontaneous
  Country: FR (occurrence: FR)
  Receive Date: 20140416
  Receipt Date: 20140424
  Transmission Date: 20141212
  Serious: Yes (Hospitalization)
  Sender: FDA-Public Use
  Company Number: FR-PFIZER INC-2014102266

PATIENT
  Age: 91 Year
  Sex: Male

DRUGS (14)
  1. EUPANTOL [Suspect]
     Dosage: 20 MG, DAILY
     Route: 048
     Dates: end: 20140212
  2. SIMVASTATIN [Suspect]
     Dosage: 20 MG, 1X/DAY
     Route: 048
  3. METFORMIN HCL [Suspect]
     Indication: DIABETES MELLITUS
     Dosage: 850 MG, 2X/DAY
     Route: 048
     Dates: end: 20140210
  4. AERIUS [Suspect]
     Dosage: 1 UNK, QD
     Route: 048
     Dates: end: 201402
  5. DEDROGYL [Suspect]
     Dosage: 5 GTT, 1X/DAY
     Route: 048
     Dates: end: 201402
  6. NATISPRAY [Suspect]
     Dosage: 2 SPRAYS, QD
     Route: 060
     Dates: end: 201402
  7. KARDEGIC [Suspect]
     Indication: PROPHYLAXIS
     Dosage: 1 BAG, QD
     Route: 048
  8. CARDENSIEL [Suspect]
     Indication: PROPHYLAXIS
     Dosage: 5 MG, 2X/DAY
     Route: 048
  9. CAPTOPRIL [Suspect]
     Indication: PROPHYLAXIS
     Dosage: 25 MG, 2X/DAY
     Route: 048
     Dates: end: 201402
  10. LASILIX [Suspect]
     Dosage: 60 MG, 1X/DAY
     Route: 048
     Dates: end: 201402
  11. SMECTA /OLD FORM/ [Concomitant]
     Dosage: UNK
  12. LACTEOL [Concomitant]
     Dosage: UNK
  13. ERCEFURYL [Concomitant]
     Dosage: UNK
  14. IMODIUM [Concomitant]
     Dosage: UNK

REACTIONS (4)
  - Colitis microscopic [Unknown]
  - Diarrhoea [Recovered/Resolved]
  - Weight decreased [Unknown]
  - Diverticulitis [Unknown]
